FAERS Safety Report 19127008 (Version 1)
Quarter: 2021Q2

REPORT INFORMATION
  Report Type: Spontaneous
  Country: US (occurrence: US)
  Receive Date: 20210412
  Receipt Date: 20210412
  Transmission Date: 20210717
  Serious: No
  Sender: FDA-Public Use
  Company Number: US-ORGANON-O2103USA003166

PATIENT
  Sex: Female

DRUGS (7)
  1. FOLLISTIM AQ [Suspect]
     Active Substance: FOLLITROPIN
     Indication: INFERTILITY FEMALE
     Dosage: STRENGTH: 900 IU/ 1.08 ML, INJECT 300 UNITS UNDER THE SKIN (SUBCUTANEOUS INJECTION) EVERY DAY FOR 10
     Route: 058
     Dates: start: 20210223
  2. GANIRELIX ACETATE INJECTION [Suspect]
     Active Substance: GANIRELIX ACETATE
     Dosage: UNK
  3. MENOPUR [Concomitant]
     Active Substance: FOLLITROPIN\LUTEINIZING HORMONE
  4. BENZOYL PEROXIDE. [Concomitant]
     Active Substance: BENZOYL PEROXIDE
  5. XANAX [Concomitant]
     Active Substance: ALPRAZOLAM
  6. NIKKI [Concomitant]
     Active Substance: DROSPIRENONE\ETHINYL ESTRADIOL
  7. ZITHRANOL [Concomitant]
     Active Substance: ANTHRALIN

REACTIONS (1)
  - Nausea [Not Recovered/Not Resolved]
